FAERS Safety Report 7902925-9 (Version None)
Quarter: 2011Q4

REPORT INFORMATION
  Report Type: 
  Country: None (occurrence: None)
  Receive Date: 20111109
  Receipt Date: 20111031
  Transmission Date: 20120403
  Serious: Yes (Hospitalization)
  Sender: FDA-Public Use
  Company Number: US-JNJFOC-20111103037

PATIENT
  Sex: Male
  Weight: 84.37 kg

DRUGS (2)
  1. RISPERDAL [Suspect]
     Indication: BIPOLAR DISORDER
     Route: 048
     Dates: start: 20030101, end: 20030101
  2. RISPERDAL [Suspect]
     Indication: SCHIZOPHRENIA
     Route: 048
     Dates: start: 20030101, end: 20030101

REACTIONS (4)
  - SOMNOLENCE [None]
  - TREATMENT NONCOMPLIANCE [None]
  - HOSPITALISATION [None]
  - ABDOMINAL PAIN UPPER [None]
